FAERS Safety Report 10410363 (Version 2)
Quarter: 2014Q3

REPORT INFORMATION
  Report Type: Spontaneous
  Country: US (occurrence: US)
  Receive Date: 20140826
  Receipt Date: 20140826
  Transmission Date: 20150326
  Serious: Yes (Death, Hospitalization)
  Sender: FDA-Public Use
  Company Number: US-GLAXOSMITHKLINE-A0770307A

PATIENT
  Sex: Female
  Weight: 133.6 kg

DRUGS (4)
  1. AVANDIA [Suspect]
     Active Substance: ROSIGLITAZONE MALEATE
     Indication: DIABETES MELLITUS
     Dosage: 8MG PER DAY
     Route: 048
     Dates: start: 200502, end: 20061006
  2. TERAZOSIN [Concomitant]
     Active Substance: TERAZOSIN\TERAZOSIN HYDROCHLORIDE
  3. COUMADIN [Concomitant]
     Active Substance: WARFARIN SODIUM
  4. ADALAT [Concomitant]
     Active Substance: NIFEDIPINE

REACTIONS (4)
  - Cardiopulmonary failure [Fatal]
  - Cerebrovascular accident [Fatal]
  - Transient ischaemic attack [Unknown]
  - Myocardial infarction [Unknown]
